FAERS Safety Report 6316090-5 (Version None)
Quarter: 2009Q3

REPORT INFORMATION
  Report Type: 
  Country: None (occurrence: None)
  Receive Date: 20090819
  Receipt Date: 20090819
  Transmission Date: 20100115
  Serious: Yes (Hospitalization)
  Sender: FDA-Public Use
  Company Number: None

PATIENT
  Age: 48 Year
  Sex: Female
  Weight: 65.318 kg

DRUGS (1)
  1. HALDOL [Suspect]
     Indication: PSYCHOTIC DISORDER
     Dosage: 5MG AT BEDTIME PO
     Route: 048
     Dates: start: 20090811, end: 20090811

REACTIONS (2)
  - DRUG HYPERSENSITIVITY [None]
  - DYSTONIA [None]
